FAERS Safety Report 20421853 (Version 1)
Quarter: 2022Q1

REPORT INFORMATION
  Report Type: Report from Study
  Country: US (occurrence: US)
  Receive Date: 20220203
  Receipt Date: 20220203
  Transmission Date: 20220423
  Serious: No
  Sender: FDA-Public Use
  Company Number: US-BIOVITRUM-2022US01344

PATIENT
  Sex: Male

DRUGS (1)
  1. KINERET [Suspect]
     Active Substance: ANAKINRA
     Indication: Rheumatoid arthritis
     Route: 058
     Dates: start: 20190429, end: 202112

REACTIONS (4)
  - Loss of personal independence in daily activities [Unknown]
  - Red blood cell sedimentation rate abnormal [Unknown]
  - Emotional disorder [Unknown]
  - Therapeutic response decreased [Unknown]
